FAERS Safety Report 6249416-1 (Version None)
Quarter: 2009Q2

REPORT INFORMATION
  Report Type: 
  Country: None (occurrence: None)
  Receive Date: 20090629
  Receipt Date: 20090623
  Transmission Date: 20091009
  Serious: Yes (Death)
  Sender: FDA-Public Use
  Company Number: A0560628A

PATIENT
  Age: 57 Year
  Sex: Male

DRUGS (2)
  1. PAXIL CR [Suspect]
     Indication: DEPRESSION
     Dosage: 12.5MG TWICE PER DAY
     Route: 048
     Dates: start: 20030326, end: 20030520
  2. XANAX [Concomitant]

REACTIONS (8)
  - AGITATION [None]
  - ANOREXIA [None]
  - ANXIETY [None]
  - COMPLETED SUICIDE [None]
  - HEADACHE [None]
  - INSOMNIA [None]
  - NIGHT SWEATS [None]
  - TREMOR [None]
